FAERS Safety Report 9761204 (Version 1)
Quarter: 2013Q4

REPORT INFORMATION
  Report Type: Spontaneous
  Country: US (occurrence: US)
  Receive Date: 20131216
  Receipt Date: 20131216
  Transmission Date: 20140711
  Serious: Yes (Other)
  Sender: FDA-Public Use
  Company Number: US-PFIZER INC-2013357952

PATIENT
  Age: 56 Year
  Sex: Female
  Weight: 77.1 kg

DRUGS (8)
  1. GABAPENTIN [Suspect]
     Indication: FIBROMYALGIA
     Dosage: 300 MG, 2X/DAY
     Dates: start: 2012
  2. GABAPENTIN [Suspect]
     Indication: INTERVERTEBRAL DISC PROTRUSION
  3. NAPROSYN [Suspect]
     Indication: FIBROMYALGIA
     Dosage: 500 MG, 2X/DAY
  4. NAPROSYN [Suspect]
     Indication: INTERVERTEBRAL DISC PROTRUSION
  5. SAVELLA [Suspect]
     Indication: FIBROMYALGIA
     Dosage: 150 MG, 2X/DAY
     Dates: start: 2013
  6. SAVELLA [Suspect]
     Indication: INTERVERTEBRAL DISC PROTRUSION
  7. LYRICA [Concomitant]
     Indication: FIBROMYALGIA
     Dosage: 150 MG, 2X/DAY
     Dates: start: 201311
  8. LYRICA [Concomitant]
     Indication: INTERVERTEBRAL DISC PROTRUSION

REACTIONS (7)
  - Off label use [Unknown]
  - Mental impairment [Unknown]
  - Drug ineffective for unapproved indication [Unknown]
  - Depression [Unknown]
  - Epstein-Barr virus test positive [Unknown]
  - Amylase increased [Unknown]
  - Lipase increased [Unknown]
